FAERS Safety Report 13577221 (Version 2)
Quarter: 2017Q2

REPORT INFORMATION
  Report Type: Spontaneous
  Country: BR (occurrence: BR)
  Receive Date: 20170524
  Receipt Date: 20170602
  Transmission Date: 20170830
  Serious: Yes (Hospitalization)
  Sender: FDA-Public Use
  Company Number: BR-PFIZER INC-2017224598

PATIENT
  Age: 77 Year
  Sex: Male

DRUGS (5)
  1. ASPIRINA PREVENT [Concomitant]
     Active Substance: ASPIRIN
     Dosage: 100 MG, 1X/DAY
     Dates: start: 2016
  2. LIPITOR [Suspect]
     Active Substance: ATORVASTATIN CALCIUM
     Dosage: 20 MG, 1X/DAY (AT DINNER)
     Dates: start: 2016, end: 20170504
  3. FLUXOCOR [Concomitant]
     Dosage: 20 MG, DAILY
     Dates: start: 2016
  4. GLIFAGE XR [Concomitant]
     Active Substance: METFORMIN HYDROCHLORIDE
     Dosage: 500 MG, 2X/DAY (1 AT BREAKFAST AND 1 AT DINNER)
     Dates: start: 2016
  5. THIOCTACID [Concomitant]
     Active Substance: THIOCTIC ACID
     Indication: DIABETIC NEUROPATHY
     Dosage: 600 MG, 1X/DAY
     Dates: start: 20170502

REACTIONS (7)
  - Atrial fibrillation [Recovering/Resolving]
  - Diabetic neuropathy [Not Recovered/Not Resolved]
  - Acute myocardial infarction [Recovering/Resolving]
  - Polycythaemia [Unknown]
  - Cerebral infarction [Recovering/Resolving]
  - Atrial flutter [Recovering/Resolving]
  - Paraesthesia [Recovered/Resolved]

NARRATIVE: CASE EVENT DATE: 2016
